FAERS Safety Report 11443501 (Version 1)
Quarter: 2015Q3

REPORT INFORMATION
  Report Type: Report from Study
  Country: CA (occurrence: CA)
  Receive Date: 20150901
  Receipt Date: 20150901
  Transmission Date: 20151125
  Serious: Yes (Death, Other)
  Sender: FDA-Public Use
  Company Number: CA-AMGEN-CANSL2015087936

PATIENT
  Age: 65 Year
  Sex: Male

DRUGS (1)
  1. NEUPOGEN [Suspect]
     Active Substance: FILGRASTIM
     Indication: PRODUCT USED FOR UNKNOWN INDICATION
     Dosage: 1ML/300 MCG, UNK
     Route: 065
     Dates: start: 20140923

REACTIONS (1)
  - Death [Fatal]

NARRATIVE: CASE EVENT DATE: 20150813
